FAERS Safety Report 13970190 (Version 1)
Quarter: 2017Q3

REPORT INFORMATION
  Report Type: Spontaneous
  Country: US (occurrence: US)
  Receive Date: 20170914
  Receipt Date: 20170914
  Transmission Date: 20171128
  Serious: Yes (Other)
  Sender: FDA-Public Use
  Company Number: US-ROCHE-1055935

PATIENT
  Age: 6 Year
  Sex: Male

DRUGS (9)
  1. ACTH [Concomitant]
     Active Substance: CORTICOTROPIN
     Dosage: 16 IU/M2 QOD
     Route: 065
  2. AZATHIOPRINE. [Concomitant]
     Active Substance: AZATHIOPRINE
  3. ACTH [Concomitant]
     Active Substance: CORTICOTROPIN
     Dosage: 9 IU/M2 QOD
     Route: 065
  4. RITUXIMAB. [Suspect]
     Active Substance: RITUXIMAB
     Indication: OPSOCLONUS MYOCLONUS
     Route: 042
  5. PREDNISOLONE. [Concomitant]
     Active Substance: PREDNISOLONE
     Dosage: FOR 2 DAYS EACH WEEK
     Route: 065
  6. ACTH [Concomitant]
     Active Substance: CORTICOTROPIN
     Dosage: 3 TO 2 IU/M2 QOD
     Route: 065
  7. ACTH [Concomitant]
     Active Substance: CORTICOTROPIN
     Dosage: 4 IU/M2 QOD
     Route: 065
  8. CYCLOPHOSPHAMIDE. [Concomitant]
     Active Substance: CYCLOPHOSPHAMIDE
     Route: 065
  9. METHOTREXATE. [Concomitant]
     Active Substance: METHOTREXATE
     Route: 065

REACTIONS (1)
  - Allergic cough [Recovering/Resolving]
